FAERS Safety Report 26127946 (Version 1)
Quarter: 2025Q4

REPORT INFORMATION
  Report Type: Spontaneous
  Country: EU (occurrence: EU)
  Receive Date: 20251206
  Receipt Date: 20251206
  Transmission Date: 20260117
  Serious: Yes (Other)
  Sender: CELLTRION
  Company Number: EU-ABBVIE-6558545

PATIENT

DRUGS (3)
  1. ADALIMUMAB [Suspect]
     Active Substance: ADALIMUMAB
     Indication: Proctitis ulcerative
     Dosage: 40 MILLIGRAM, Q2WEEKS
     Route: 058
  2. ADALIMUMAB [Suspect]
     Active Substance: ADALIMUMAB
  3. AMINOSALICYLATE SODIUM [Concomitant]
     Active Substance: AMINOSALICYLATE SODIUM
     Indication: Proctitis ulcerative

REACTIONS (6)
  - Anal ulcer [Recovering/Resolving]
  - Colitis ulcerative [Unknown]
  - Non-Hodgkin^s lymphoma [Unknown]
  - Rectal lesion [Unknown]
  - Dermatitis psoriasiform [Unknown]
  - Magnetic resonance imaging abnormal [Unknown]
